FAERS Safety Report 9301534 (Version 2)
Quarter: 2014Q1

REPORT INFORMATION
  Report Type: Spontaneous
  Country: US (occurrence: US)
  Receive Date: 20130521
  Receipt Date: 20140314
  Transmission Date: 20141002
  Serious: No
  Sender: FDA-Public Use
  Company Number: US-009507513-1305USA010635

PATIENT
  Sex: Male
  Weight: 80.47 kg

DRUGS (3)
  1. PROPECIA [Suspect]
     Indication: ANDROGENETIC ALOPECIA
     Dosage: 1 MG, QD
     Route: 048
     Dates: start: 200001
  2. FINASTERIDE [Suspect]
     Dosage: 5 MG, QD
     Route: 048
     Dates: start: 1999
  3. LIPITOR [Concomitant]
     Indication: HYPERLIPIDAEMIA
     Dosage: 20 MG, QD
     Route: 048

REACTIONS (4)
  - Organic erectile dysfunction [Not Recovered/Not Resolved]
  - Psoriasis [Unknown]
  - Hyperthyroidism [Unknown]
  - Sexual dysfunction [Not Recovered/Not Resolved]
